FAERS Safety Report 6813280-X (Version None)
Quarter: 2010Q2

REPORT INFORMATION
  Report Type: 
  Country: None (occurrence: None)
  Receive Date: 20100628
  Receipt Date: 20100616
  Transmission Date: 20101027
  Serious: Yes (Other)
  Sender: FDA-Public Use
  Company Number: ENDC20100013

PATIENT
  Sex: Female

DRUGS (1)
  1. ENDOCET (PARACETAMOL, OXYCODONE HYDROCHLORIDE) (TABLETS) [Suspect]
     Indication: DRUG USE FOR UNKNOWN INDICATION
     Dosage: NASAL
     Route: 045

REACTIONS (3)
  - DRUG ABUSE [None]
  - DRUG DEPENDENCE [None]
  - INCORRECT ROUTE OF DRUG ADMINISTRATION [None]
